FAERS Safety Report 10428382 (Version 2)
Quarter: 2016Q1

REPORT INFORMATION
  Report Type: Spontaneous
  Country: US (occurrence: US)
  Receive Date: 20140903
  Receipt Date: 20160115
  Transmission Date: 20160525
  Serious: Yes (Hospitalization, Other)
  Sender: FDA-Public Use
  Company Number: US-GLAXOSMITHKLINE-A1087241A

PATIENT
  Sex: Female

DRUGS (11)
  1. LAMICTAL [Suspect]
     Active Substance: LAMOTRIGINE
     Dosage: 150 MG
  2. SPIRIVA [Concomitant]
     Active Substance: TIOTROPIUM BROMIDE MONOHYDRATE
  3. ZANAFLEX [Concomitant]
     Active Substance: TIZANIDINE HYDROCHLORIDE
  4. RITALIN [Concomitant]
     Active Substance: METHYLPHENIDATE HYDROCHLORIDE
  5. LAMICTAL [Suspect]
     Active Substance: LAMOTRIGINE
     Indication: SEIZURE
     Dosage: 150 MG
     Route: 048
     Dates: start: 20040915
  6. ADVAIR HFA [Suspect]
     Active Substance: FLUTICASONE PROPIONATE\SALMETEROL XINAFOATE
     Indication: PRODUCT USED FOR UNKNOWN INDICATION
     Dosage: UNK UNK, U
     Route: 065
     Dates: start: 20130919
  7. ALBUTEROL. [Suspect]
     Active Substance: ALBUTEROL
     Indication: PRODUCT USED FOR UNKNOWN INDICATION
     Dosage: UNK UNK, U
     Route: 065
     Dates: start: 20131018
  8. PREDNISONE. [Concomitant]
     Active Substance: PREDNISONE
  9. ALEVE [Concomitant]
     Active Substance: NAPROXEN SODIUM
  10. CELEXA [Concomitant]
     Active Substance: CITALOPRAM HYDROBROMIDE
  11. XANAX [Concomitant]
     Active Substance: ALPRAZOLAM

REACTIONS (9)
  - Multiple sclerosis [Unknown]
  - Helicobacter infection [Unknown]
  - Pneumonia [Unknown]
  - Treatment noncompliance [Unknown]
  - Depression [Unknown]
  - Clostridium difficile infection [Unknown]
  - Parosmia [Unknown]
  - Chronic obstructive pulmonary disease [Unknown]
  - Partial seizures [Unknown]

NARRATIVE: CASE EVENT DATE: 2014
